FAERS Safety Report 20062180 (Version 1)
Quarter: 2021Q4

REPORT INFORMATION
  Report Type: Spontaneous
  Country: GB (occurrence: GB)
  Receive Date: 20211112
  Receipt Date: 20211112
  Transmission Date: 20220304
  Serious: No
  Sender: FDA-Public Use
  Company Number: None

PATIENT
  Age: 21 Year
  Sex: Female

DRUGS (2)
  1. GABAPENTIN [Suspect]
     Active Substance: GABAPENTIN
     Indication: Ill-defined disorder
     Dosage: UNK UNK, BID
     Route: 048
  2. PREGABALIN [Suspect]
     Active Substance: PREGABALIN
     Indication: Ill-defined disorder
     Dosage: UNK UNK, BID
     Route: 048

REACTIONS (6)
  - Restlessness [Unknown]
  - Headache [Unknown]
  - Abdominal pain upper [Unknown]
  - Anxiety [Unknown]
  - Diarrhoea [Unknown]
  - Medication error [Unknown]
